FAERS Safety Report 5249396-1 (Version None)
Quarter: 2007Q1

REPORT INFORMATION
  Report Type: 
  Country: None (occurrence: None)
  Receive Date: 20070228
  Receipt Date: 20061002
  Transmission Date: 20070707
  Serious: No
  Sender: FDA-Public Use
  Company Number: US-GLAXOSMITHKLINE-A0622107A

PATIENT
  Sex: Male

DRUGS (5)
  1. VALTREX [Suspect]
     Dosage: 1G THREE TIMES PER DAY
     Route: 048
     Dates: start: 20060926
  2. METFORMIN HCL [Concomitant]
  3. GABAPENTIN [Concomitant]
  4. PROTONIX [Concomitant]
  5. ZYRTEC [Concomitant]

REACTIONS (1)
  - BLOOD GLUCOSE INCREASED [None]
